FAERS Safety Report 8588787-8 (Version None)
Quarter: 2012Q3

REPORT INFORMATION
  Report Type: 
  Country: None (occurrence: None)
  Receive Date: 20120813
  Receipt Date: 20120807
  Transmission Date: 20120928
  Serious: Yes (Other)
  Sender: FDA-Public Use
  Company Number: PHHY2012CA058076

PATIENT
  Sex: Female

DRUGS (1)
  1. ZOLEDRONOC ACID [Suspect]
     Indication: OSTEOPOROSIS
     Route: 042
     Dates: start: 20110825

REACTIONS (4)
  - ADHESION [None]
  - COELIAC DISEASE [None]
  - LACTOSE INTOLERANCE [None]
  - INTESTINAL OBSTRUCTION [None]
